FAERS Safety Report 4851509-8 (Version None)
Quarter: 2005Q4

REPORT INFORMATION
  Report Type: 
  Country: None (occurrence: None)
  Receive Date: 20051212
  Receipt Date: 20051011
  Transmission Date: 20060501
  Serious: Yes (Other)
  Sender: FDA-Public Use
  Company Number: AU-GILEAD-2005-0008804

PATIENT
  Sex: Female
  Weight: 44 kg

DRUGS (6)
  1. TENOFOVIR DISOPROXIL FUMARATE [Suspect]
     Indication: HIV INFECTION
     Route: 048
     Dates: start: 20050819, end: 20051028
  2. KALETRA [Concomitant]
     Indication: HIV INFECTION
     Route: 048
     Dates: start: 20050819
  3. COMBIVIR [Concomitant]
     Indication: HIV INFECTION
     Route: 048
     Dates: start: 20050819
  4. MULTI-VITAMIN [Concomitant]
     Dates: start: 20050101
  5. ASCORBIC ACID [Concomitant]
     Route: 048
     Dates: start: 20050101
  6. IRON [Concomitant]
     Route: 048
     Dates: start: 20050819

REACTIONS (4)
  - DRUG EXPOSURE DURING PREGNANCY [None]
  - PREGNANCY [None]
  - SMALL FOR DATES BABY [None]
  - ULTRASOUND ANTENATAL SCREEN ABNORMAL [None]
